FAERS Safety Report 11258761 (Version 1)
Quarter: 2015Q3

REPORT INFORMATION
  Report Type: Spontaneous
  Country: US (occurrence: None)
  Receive Date: 20150709
  Receipt Date: 20150709
  Transmission Date: 20151125
  Serious: Yes (Hospitalization)
  Sender: FDA-Public Use
  Company Number: None

PATIENT
  Age: 64 Year
  Sex: Female
  Weight: 157.8 kg

DRUGS (2)
  1. CARBOPLATIN. [Suspect]
     Active Substance: CARBOPLATIN
     Dates: end: 20150507
  2. TAXOL [Suspect]
     Active Substance: PACLITAXEL
     Dates: end: 20150507

REACTIONS (4)
  - Nausea [None]
  - Hyponatraemia [None]
  - Vomiting [None]
  - Clostridium difficile infection [None]

NARRATIVE: CASE EVENT DATE: 20150509
